FAERS Safety Report 25267116 (Version 2)
Quarter: 2025Q3

REPORT INFORMATION
  Report Type: Spontaneous
  Country: EU (occurrence: EU)
  Receive Date: 20250505
  Receipt Date: 20250810
  Transmission Date: 20251020
  Serious: Yes (Hospitalization)
  Sender: ALEXION PHARMACEUTICALS
  Company Number: None

PATIENT
  Age: 52 Year
  Sex: Male

DRUGS (18)
  1. DAPAGLIFLOZIN [Suspect]
     Active Substance: DAPAGLIFLOZIN
     Indication: Type 2 diabetes mellitus
     Dates: start: 20250318, end: 20250325
  2. TAHOR [Suspect]
     Active Substance: ATORVASTATIN CALCIUM
     Indication: Cardiovascular event prophylaxis
     Dosage: 40 MILLIGRAM
     Dates: end: 20250324
  3. JANUVIA [Suspect]
     Active Substance: SITAGLIPTIN PHOSPHATE
     Indication: Type 2 diabetes mellitus
     Dosage: 50 MG
     Dates: end: 20250317
  4. AMITRIPTYLINE HYDROCHLORIDE [Concomitant]
     Active Substance: AMITRIPTYLINE HYDROCHLORIDE
     Dosage: 25 MG
  5. AMLODIPINE BESYLATE [Concomitant]
     Active Substance: AMLODIPINE BESYLATE
     Dosage: 1 DOSAGE FORM, QD, 10 MG
  6. ABILIFY [Concomitant]
     Active Substance: ARIPIPRAZOLE
     Dosage: 3 DOSAGE FORM, QD, 5 MG
  7. NEURONTIN [Concomitant]
     Active Substance: GABAPENTIN
     Dosage: 6 DOSAGE FORM, QD, 300 MG
  8. POLYETHYLENE GLYCOLS [Concomitant]
     Active Substance: POLYETHYLENE GLYCOLS
  9. MELATONIN [Concomitant]
     Active Substance: MELATONIN
     Dosage: 1 DOSAGE FORM, QD
  10. METFORMIN HYDROCHLORIDE [Concomitant]
     Active Substance: METFORMIN HYDROCHLORIDE
     Dosage: 2 GRAM, QD
  11. MORPHINE SULFATE [Concomitant]
     Active Substance: MORPHINE SULFATE
  12. OXAZEPAM [Concomitant]
     Active Substance: OXAZEPAM
     Dosage: 2 DOSAGE FORM, QD
  13. DOLIPRANE [Concomitant]
     Active Substance: ACETAMINOPHEN
     Dosage: 6 DOSAGE FORM, QD
  14. PERINDOPRIL [Concomitant]
     Active Substance: PERINDOPRIL
     Dosage: 8 MILLIGRAM, QD
  15. QUETIAPINE FUMARATE [Concomitant]
     Active Substance: QUETIAPINE FUMARATE
     Dosage: 6 DOSAGE FORM, QD
  16. WARFARIN SODIUM [Concomitant]
     Active Substance: WARFARIN SODIUM
     Dosage: 2 DOSAGE FORM, QD
  17. INSULIN GLARGINE [Concomitant]
     Active Substance: INSULIN GLARGINE
  18. HUMALOG [Concomitant]
     Active Substance: INSULIN LISPRO

REACTIONS (1)
  - Cholestasis [Recovering/Resolving]

NARRATIVE: CASE EVENT DATE: 20250320
